FAERS Safety Report 6927226-7 (Version None)
Quarter: 2010Q3

REPORT INFORMATION
  Report Type: 
  Country: None (occurrence: None)
  Receive Date: 20100817
  Receipt Date: 20100811
  Transmission Date: 20110219
  Serious: Yes (Hospitalization)
  Sender: FDA-Public Use
  Company Number: US-BIOGENIDEC-2009BI024594

PATIENT
  Age: 44 Year
  Sex: Female
  Weight: 75 kg

DRUGS (6)
  1. TYSABRI [Suspect]
     Indication: MULTIPLE SCLEROSIS
     Route: 042
     Dates: start: 20090212, end: 20100331
  2. SIMVASTATIN [Concomitant]
     Indication: BLOOD CHOLESTEROL INCREASED
  3. KLONOPIN [Concomitant]
     Indication: DEPRESSION
  4. CYMBALTA [Concomitant]
     Indication: DEPRESSION
  5. NEXIUM [Concomitant]
     Indication: GASTROOESOPHAGEAL REFLUX DISEASE
  6. TRAZODONE HCL [Concomitant]
     Indication: DEPRESSION

REACTIONS (10)
  - ARTHRALGIA [None]
  - BLADDER SPASM [None]
  - COGNITIVE DISORDER [None]
  - JOINT STIFFNESS [None]
  - MENOMETRORRHAGIA [None]
  - MULTIPLE SCLEROSIS RELAPSE [None]
  - NAUSEA [None]
  - RADICAL HYSTERECTOMY [None]
  - URINARY INCONTINENCE [None]
  - URINARY TRACT INFECTION [None]
